FAERS Safety Report 14893139 (Version 1)
Quarter: 2018Q2

REPORT INFORMATION
  Report Type: Spontaneous
  Country: DE (occurrence: DE)
  Receive Date: 20180514
  Receipt Date: 20180514
  Transmission Date: 20180711
  Serious: Yes (Other)
  Sender: FDA-Public Use
  Company Number: DE-MYLANLABS-2018M1031156

PATIENT
  Age: 73 Year
  Sex: Male
  Weight: 72.9 kg

DRUGS (39)
  1. GRANISETRON [Concomitant]
     Active Substance: GRANISETRON
     Dosage: BEFORE CHEMOTHERAPY
     Route: 042
  2. CALCIMAGON D3 [Concomitant]
     Active Substance: CALCIUM\CHOLECALCIFEROL
     Indication: VITAMIN D DEFICIENCY
     Dosage: 1250 MG, QD
     Route: 048
     Dates: start: 20160209
  3. LAXOBERAL [Concomitant]
     Active Substance: SODIUM PICOSULFATE
     Indication: CONSTIPATION
     Dosage: 15 GTT, QD
     Route: 048
     Dates: start: 20160407, end: 20160407
  4. FORTECORTIN                        /00016001/ [Concomitant]
     Active Substance: DEXAMETHASONE
     Dosage: DAY 1 OF CYCLE
     Route: 042
     Dates: start: 20160204, end: 20160630
  5. ATROPIN                            /00002801/ [Concomitant]
     Active Substance: ATROPINE
     Dosage: BEFORE IRINOTECAN ADMINISTRATION
     Route: 042
  6. GRANISETRON [Concomitant]
     Active Substance: GRANISETRON
     Indication: VOMITING
     Dosage: 1 MG, QD
     Route: 042
     Dates: start: 20170112, end: 20170112
  7. IRINOTECAN [Concomitant]
     Active Substance: IRINOTECAN
     Indication: COLORECTAL CANCER
     Dosage: 315.2 MG, Q3W
     Route: 042
     Dates: start: 20160204, end: 20170517
  8. KEVATRIL [Concomitant]
     Active Substance: GRANISETRON HYDROCHLORIDE
     Indication: NAUSEA
     Dosage: UNK
  9. KEVATRIL [Concomitant]
     Active Substance: GRANISETRON HYDROCHLORIDE
     Indication: VOMITING
     Dosage: DAY 1 OF CYCLE
     Route: 042
     Dates: start: 20160204, end: 20160630
  10. VIGANTOLETTEN [Concomitant]
     Active Substance: CHOLECALCIFEROL
     Dosage: 1000 IU, QD
     Route: 048
     Dates: start: 20160201
  11. DEXAMETHASON                       /00016001/ [Concomitant]
     Active Substance: DEXAMETHASONE
     Indication: INFECTION
     Dosage: BEFORE CHEMOTHERAPY
     Route: 042
  12. ATROPIN                            /00002801/ [Concomitant]
     Active Substance: ATROPINE
     Indication: CHOLINERGIC SYNDROME
     Dosage: 0.25 MG, QD
     Route: 058
     Dates: start: 20170706, end: 20170706
  13. FORTECORTIN                        /00016001/ [Concomitant]
     Active Substance: DEXAMETHASONE
     Indication: NAUSEA
     Dosage: UNK
  14. DEXAMETHASON                       /00016001/ [Concomitant]
     Active Substance: DEXAMETHASONE
     Dosage: CYCLIAL^BEFORE CHEMOTHERAPY
     Route: 042
  15. DEXAMETHASON                       /00016001/ [Concomitant]
     Active Substance: DEXAMETHASONE
     Dosage: 16 MG, QD
     Route: 048
     Dates: start: 20170706, end: 20170707
  16. ATROPIN                            /00002801/ [Concomitant]
     Active Substance: ATROPINE
     Indication: DIARRHOEA
     Dosage: BEFORE IRINOTECAN ADMINISTRATION
     Route: 058
  17. GRANISETRON [Concomitant]
     Active Substance: GRANISETRON
     Indication: NAUSEA
     Dosage: BEFORE CHEMOTHERAPY
     Route: 042
  18. CORTISONE [Concomitant]
     Active Substance: CORTISONE\HYDROCORTISONE
     Indication: PRODUCT USED FOR UNKNOWN INDICATION
     Route: 065
  19. CAPECITABINE. [Suspect]
     Active Substance: CAPECITABINE
     Dosage: UNK
     Route: 048
  20. CAPECITABINE. [Suspect]
     Active Substance: CAPECITABINE
     Dosage: 3000 MG, Q3W
     Route: 048
     Dates: start: 20170517, end: 20170903
  21. CAPECITABINE. [Suspect]
     Active Substance: CAPECITABINE
     Dosage: 3000 MG, Q3W
     Route: 048
     Dates: start: 20160204, end: 20160217
  22. BEVACIZUMAB. [Suspect]
     Active Substance: BEVACIZUMAB
     Indication: COLORECTAL CANCER METASTATIC
     Dosage: 547.5 MG, Q3W
     Route: 042
     Dates: start: 20160204, end: 20160204
  23. ATROPIN                            /00002801/ [Concomitant]
     Active Substance: ATROPINE
     Dosage: 0.25 MG, QD
     Route: 058
     Dates: start: 20170112, end: 20170112
  24. VERGENTAN [Concomitant]
     Active Substance: ALIZAPRIDE HYDROCHLORIDE
     Indication: VOMITING
     Dosage: 3 DF, QD
     Route: 048
     Dates: start: 20160204, end: 20160702
  25. IRINOTECAN [Concomitant]
     Active Substance: IRINOTECAN
     Dosage: 394 MG, UNK
     Route: 042
     Dates: start: 20170112, end: 20170112
  26. VIGANTOLETTEN [Concomitant]
     Active Substance: CHOLECALCIFEROL
     Indication: VITAMIN D DEFICIENCY
     Dosage: 1000 IU, QD
     Route: 048
     Dates: start: 20160201
  27. DEXAMETHASON                       /00016001/ [Concomitant]
     Active Substance: DEXAMETHASONE
     Dosage: 8 MG, QD
     Route: 042
     Dates: start: 20170706, end: 20170706
  28. SIMVASTATIN. [Concomitant]
     Active Substance: SIMVASTATIN
     Indication: PRODUCT USED FOR UNKNOWN INDICATION
     Dosage: 20 MG, QD
     Route: 048
     Dates: start: 2006
  29. BEVACIZUMAB. [Suspect]
     Active Substance: BEVACIZUMAB
     Dosage: 547.5 MG, Q3W
     Route: 042
     Dates: start: 20171002, end: 20171002
  30. DEXAMETHASON                       /00016001/ [Concomitant]
     Active Substance: DEXAMETHASONE
     Dosage: 16 MG, QD
     Route: 048
     Dates: start: 20170517, end: 20170517
  31. DEXAMETHASON                       /00016001/ [Concomitant]
     Active Substance: DEXAMETHASONE
     Dosage: 16 MG, QD
     Route: 048
     Dates: start: 20170112, end: 20170113
  32. GRANISETRON [Concomitant]
     Active Substance: GRANISETRON
     Dosage: 1 MG, QD
     Route: 042
     Dates: start: 20170706, end: 20170706
  33. VERGENTAN [Concomitant]
     Active Substance: ALIZAPRIDE HYDROCHLORIDE
     Dosage: 50 MG, UNK
     Route: 048
  34. CAPECITABINE. [Suspect]
     Active Substance: CAPECITABINE
     Indication: PRODUCT USED FOR UNKNOWN INDICATION
     Dosage: 3000 MG, Q3W
     Route: 048
     Dates: start: 20170202, end: 20170215
  35. BEVACIZUMAB. [Suspect]
     Active Substance: BEVACIZUMAB
     Dosage: 547.5 MG, UNK
     Route: 042
     Dates: start: 20170202, end: 20170202
  36. BEVACIZUMAB. [Suspect]
     Active Substance: BEVACIZUMAB
     Dosage: 547.5 MG, UNK
     Route: 042
     Dates: start: 20160630
  37. DEXAMETHASON                       /00016001/ [Concomitant]
     Active Substance: DEXAMETHASONE
     Indication: CHOLINERGIC SYNDROME
     Dosage: 8 MG, QD
     Route: 042
     Dates: start: 20170112, end: 20170112
  38. ASPIRIN. [Concomitant]
     Active Substance: ASPIRIN
     Indication: BASAL GANGLIA INFARCTION
     Dosage: 100 MG, QD
     Route: 048
     Dates: start: 20160215
  39. RAMIPRIL. [Concomitant]
     Active Substance: RAMIPRIL
     Indication: HYPERTENSION
     Dosage: 10 MG, QD
     Route: 048
     Dates: start: 2006

REACTIONS (20)
  - Urinary retention [Recovered/Resolved]
  - Rash [Recovered/Resolved]
  - Proteinuria [Not Recovered/Not Resolved]
  - Hypertension [Recovered/Resolved]
  - Arthropod sting [Recovered/Resolved]
  - Dermatitis acneiform [Recovered/Resolved]
  - Bradycardia [Recovered/Resolved]
  - Decreased appetite [Recovered/Resolved]
  - Constipation [Recovered/Resolved]
  - Weight decreased [Recovered/Resolved]
  - Vomiting [Recovered/Resolved]
  - Neutrophil count decreased [Not Recovered/Not Resolved]
  - Swelling [Recovered/Resolved]
  - Alopecia [Not Recovered/Not Resolved]
  - Hypokalaemia [Not Recovered/Not Resolved]
  - Hyperhidrosis [Recovered/Resolved]
  - Mucosal inflammation [Recovered/Resolved]
  - Cystitis [Recovered/Resolved]
  - Nausea [Recovered/Resolved]
  - Palmar-plantar erythrodysaesthesia syndrome [Not Recovered/Not Resolved]

NARRATIVE: CASE EVENT DATE: 20160318
